FAERS Safety Report 19126881 (Version 1)
Quarter: 2021Q2

REPORT INFORMATION
  Report Type: Spontaneous
  Country: US (occurrence: US)
  Receive Date: 20210412
  Receipt Date: 20210412
  Transmission Date: 20210717
  Serious: Yes (Hospitalization, Other)
  Sender: FDA-Public Use
  Company Number: US-ABBVIE-21K-163-3817917-00

PATIENT
  Age: 68 Year
  Sex: Male
  Weight: 79.45 kg

DRUGS (2)
  1. HUMIRA [Suspect]
     Active Substance: ADALIMUMAB
     Indication: UVEITIS
     Route: 058
     Dates: start: 20210309, end: 202103
  2. MAGNESSIUM [Concomitant]
     Indication: SUPPLEMENTATION THERAPY

REACTIONS (25)
  - Facial bones fracture [Not Recovered/Not Resolved]
  - Scar [Recovering/Resolving]
  - Insomnia [Not Recovered/Not Resolved]
  - Pruritus [Not Recovered/Not Resolved]
  - Erythema [Not Recovered/Not Resolved]
  - Off label use [Unknown]
  - Rash pustular [Not Recovered/Not Resolved]
  - Eye contusion [Not Recovered/Not Resolved]
  - Contusion [Recovering/Resolving]
  - Hypertension [Recovered/Resolved]
  - Tinnitus [Not Recovered/Not Resolved]
  - Wheezing [Recovered/Resolved]
  - Respiratory disorder [Unknown]
  - Dyspnoea [Recovered/Resolved]
  - Fall [Recovered/Resolved]
  - Urticaria [Recovered/Resolved]
  - Rhinorrhoea [Not Recovered/Not Resolved]
  - Thirst [Recovering/Resolving]
  - Inflammation [Not Recovered/Not Resolved]
  - Dehydration [Recovering/Resolving]
  - Anaphylactic shock [Not Recovered/Not Resolved]
  - Pharyngeal disorder [Recovered/Resolved]
  - Pruritus [Not Recovered/Not Resolved]
  - Abdominal discomfort [Not Recovered/Not Resolved]
  - Dyspepsia [Not Recovered/Not Resolved]

NARRATIVE: CASE EVENT DATE: 202103
